APPROVED DRUG PRODUCT: TEMOVATE E
Active Ingredient: CLOBETASOL PROPIONATE
Strength: 0.05% **Federal Register determination that product was not discontinued or withdrawn for safety or effectiveness reasons**
Dosage Form/Route: CREAM;TOPICAL
Application: N020340 | Product #001
Applicant: FOUGERA PHARMACEUTICALS INC
Approved: Jun 17, 1994 | RLD: Yes | RS: No | Type: DISCN